FAERS Safety Report 8475265-X (Version None)
Quarter: 2012Q2

REPORT INFORMATION
  Report Type: 
  Country: None (occurrence: None)
  Receive Date: 20120628
  Receipt Date: 20120618
  Transmission Date: 20120825
  Serious: No
  Sender: FDA-Public Use
  Company Number: US-ROCHE-1075431

PATIENT

DRUGS (6)
  1. XOLAIR [Suspect]
     Indication: PRODUCT USED FOR UNKNOWN INDICATION
     Route: 058
  2. OMEPRAZOLE [Concomitant]
     Route: 048
  3. FLUTICASONE PROPIONATE [Concomitant]
     Route: 045
  4. FEXOFENADINE [Concomitant]
     Route: 048
  5. SYMBICORT [Concomitant]
     Indication: ASTHMA
     Route: 042
  6. ALBUTEROL [Concomitant]
     Indication: ASTHMA

REACTIONS (4)
  - OROPHARYNGEAL PAIN [None]
  - HEART RATE DECREASED [None]
  - CHEST DISCOMFORT [None]
  - HYPOTENSION [None]
